FAERS Safety Report 6036271-8 (Version None)
Quarter: 2009Q1

REPORT INFORMATION
  Report Type: 
  Country: None (occurrence: None)
  Receive Date: 20090113
  Receipt Date: 20090106
  Transmission Date: 20090719
  Serious: Yes (Other)
  Sender: FDA-Public Use
  Company Number: PHBS2009GB00457

PATIENT
  Age: 31 Year
  Sex: Female

DRUGS (2)
  1. ERGOMETRINE MALEATE,SYNTHETIC OXYTOCIN [Suspect]
     Dosage: 5 IU SYNTO - 500 UG ERGO ONCE
     Route: 030
  2. FOLATE SODIUM [Concomitant]
     Dosage: 400 UG/DAY

REACTIONS (7)
  - ASTIGMATISM [None]
  - RETINAL ARTERY OCCLUSION [None]
  - RETINAL DISORDER [None]
  - RETINAL OEDEMA [None]
  - RETINAL PALLOR [None]
  - SCOTOMA [None]
  - VISION BLURRED [None]
